FAERS Safety Report 7876234-0 (Version None)
Quarter: 2011Q4

REPORT INFORMATION
  Report Type: 
  Country: None (occurrence: None)
  Receive Date: 20111031
  Receipt Date: 20111025
  Transmission Date: 20120403
  Serious: Yes (Hospitalization)
  Sender: FDA-Public Use
  Company Number: IT-BRISTOL-MYERS SQUIBB COMPANY-16197121

PATIENT
  Age: 73 Year
  Sex: Male

DRUGS (2)
  1. IPILIMUMAB [Suspect]
     Indication: MALIGNANT MELANOMA
     Dosage: VIAL NO:341837,341838
     Dates: start: 20111015
  2. TRANSFUSION [Concomitant]
     Dates: start: 20111024

REACTIONS (2)
  - MELAENA [None]
  - ANAEMIA [None]
